FAERS Safety Report 17491155 (Version 2)
Quarter: 2020Q1

REPORT INFORMATION
  Report Type: Spontaneous
  Country: US (occurrence: US)
  Receive Date: 20200303
  Receipt Date: 20200311
  Transmission Date: 20200409
  Serious: No
  Sender: FDA-Public Use
  Company Number: US-SA-2020SA048860

PATIENT
  Age: 62 Year
  Sex: Male

DRUGS (1)
  1. KEVZARA [Suspect]
     Active Substance: SARILUMAB
     Indication: RHEUMATOID ARTHRITIS
     Dosage: 200 MG, QOW
     Route: 058
     Dates: start: 20191029

REACTIONS (5)
  - Injection site swelling [Unknown]
  - Rash [Unknown]
  - Injection site warmth [Unknown]
  - Injection site mass [Unknown]
  - Musculoskeletal stiffness [Unknown]
